FAERS Safety Report 4803927-1 (Version None)
Quarter: 2005Q3

REPORT INFORMATION
  Report Type: 
  Country: None (occurrence: None)
  Receive Date: 20050920
  Receipt Date: 20050524
  Transmission Date: 20060218
  Serious: No
  Sender: FDA-Public Use
  Company Number: US-YAMANOUCHI-YPA20050277

PATIENT
  Age: 80 Year
  Sex: Male

DRUGS (15)
  1. VESICARE [Suspect]
     Indication: HYPERTONIC BLADDER
     Dosage: 5 MG QD PO
     Route: 048
     Dates: start: 20050520
  2. XALATAN [Concomitant]
  3. BENICAR HCT [Concomitant]
  4. NORVASK [Concomitant]
  5. AGGRENOX [Concomitant]
  6. PLETAL [Concomitant]
  7. LEXAPRO [Concomitant]
  8. FEOSOL [Concomitant]
  9. LANTUS [Concomitant]
  10. MEGESTROL [Concomitant]
  11. VIOKASE [Concomitant]
  12. NOVOLOG [Concomitant]
  13. RANITIDINE [Concomitant]
  14. HYTRIN [Concomitant]
  15. XANAX [Concomitant]

REACTIONS (1)
  - DRUG INEFFECTIVE [None]
